FAERS Safety Report 24859866 (Version 1)
Quarter: 2025Q1

REPORT INFORMATION
  Report Type: Spontaneous
  Country: JP (occurrence: JP)
  Receive Date: 20250119
  Receipt Date: 20250119
  Transmission Date: 20250409
  Serious: Yes (Other)
  Sender: SANOFI AVENTIS
  Company Number: JP-SAKK-2025SA012183AA

PATIENT
  Age: 10 Year
  Sex: Male

DRUGS (2)
  1. RASBURICASE [Suspect]
     Active Substance: RASBURICASE
     Indication: Product used for unknown indication
     Route: 041
  2. METHYLENE BLUE [Suspect]
     Active Substance: METHYLENE BLUE
     Indication: Methaemoglobinaemia
     Route: 042

REACTIONS (2)
  - Methaemoglobinaemia [Recovered/Resolved]
  - Haemolytic anaemia [Recovered/Resolved]
